FAERS Safety Report 9304967 (Version 1)
Quarter: 2013Q2

REPORT INFORMATION
  Report Type: Spontaneous
  Country: US (occurrence: None)
  Receive Date: 20130521
  Receipt Date: 20130521
  Transmission Date: 20140414
  Serious: Yes (Life-Threatening)
  Sender: FDA-Public Use
  Company Number: None

PATIENT
  Age: 47 Year
  Sex: Female
  Weight: 79.38 kg

DRUGS (1)
  1. AZITHROMYCIN [Suspect]
     Dosage: 250 MG 2 TABS ON DAY 1 PO
     Route: 048

REACTIONS (6)
  - Palpitations [None]
  - Palpitations [None]
  - Dizziness [None]
  - Dyspnoea [None]
  - Tachycardia [None]
  - Heart rate irregular [None]
